FAERS Safety Report 8966806 (Version 1)
Quarter: 2012Q4

REPORT INFORMATION
  Report Type: 
  Country: US (occurrence: US)
  Receive Date: 20121214
  Receipt Date: 20121214
  Transmission Date: 20130627
  Serious: No
  Sender: FDA-Public Use
  Company Number: US-009507513-1212USA005188

PATIENT
  Age: 21 Year
  Sex: Female

DRUGS (2)
  1. NUVARING [Suspect]
     Indication: CONTRACEPTION
     Dosage: UNK, 3 weeks in 1 week out
     Route: 067
     Dates: start: 2011
  2. ZOLOFT [Concomitant]
     Dosage: UNK

REACTIONS (3)
  - Unintended pregnancy [Unknown]
  - Polymenorrhoea [Recovered/Resolved]
  - Menstruation delayed [Unknown]
